FAERS Safety Report 11325589 (Version 1)
Quarter: 2015Q3

REPORT INFORMATION
  Report Type: Spontaneous
  Country: CH (occurrence: CH)
  Receive Date: 20150731
  Receipt Date: 20150731
  Transmission Date: 20151125
  Serious: Yes (Death)
  Sender: FDA-Public Use
  Company Number: CH-ACCORD-032566

PATIENT
  Age: 40 Year
  Sex: Male
  Weight: 63 kg

DRUGS (5)
  1. CLONAZEPAM. [Suspect]
     Active Substance: CLONAZEPAM
     Indication: PRODUCT USED FOR UNKNOWN INDICATION
  2. DIAZEPAM. [Suspect]
     Active Substance: DIAZEPAM
     Indication: PRODUCT USED FOR UNKNOWN INDICATION
  3. TRAMADOL/TRAMADOL HYDROCHLORIDE [Suspect]
     Active Substance: TRAMADOL HYDROCHLORIDE
     Indication: ABDOMINAL PAIN
  4. CITALOPRAM [Suspect]
     Active Substance: CITALOPRAM HYDROBROMIDE
     Indication: PRODUCT USED FOR UNKNOWN INDICATION
  5. OXYCODONE/OXYCODONE HYDROCHLORIDE/OXYCODONE PECTINATE/OXYCODONE TEREPHTHALATE [Suspect]
     Active Substance: OXYCODONE
     Indication: PRODUCT USED FOR UNKNOWN INDICATION

REACTIONS (15)
  - Pulmonary oedema [None]
  - Iliac artery perforation [None]
  - Treatment noncompliance [Unknown]
  - Retroperitoneal haematoma [None]
  - Pelvic haemorrhage [None]
  - Drug level increased [Fatal]
  - Self-medication [Unknown]
  - Rib fracture [None]
  - Haemorrhage [None]
  - Incision site haemorrhage [None]
  - Toxicity to various agents [None]
  - Post procedural complication [None]
  - Loss of consciousness [None]
  - Peritoneal haemorrhage [None]
  - Brain oedema [None]
